FAERS Safety Report 6133139-3 (Version None)
Quarter: 2009Q1

REPORT INFORMATION
  Report Type: 
  Country: None (occurrence: None)
  Receive Date: 20090325
  Receipt Date: 20090325
  Transmission Date: 20090719
  Serious: No
  Sender: FDA-Public Use
  Company Number: None

PATIENT
  Age: 83 Year
  Sex: Female

DRUGS (1)
  1. LORAZEPAM [Suspect]
     Dosage: 1 TABLET Q6H WHILE AWAKE OROPHARINGEAL
     Route: 049
     Dates: start: 20081215, end: 20081217

REACTIONS (1)
  - SEDATION [None]
